FAERS Safety Report 18892007 (Version 1)
Quarter: 2021Q1

REPORT INFORMATION
  Report Type: Report from Study
  Country: GB (occurrence: GB)
  Receive Date: 20210215
  Receipt Date: 20210215
  Transmission Date: 20210420
  Serious: Yes (Other)
  Sender: FDA-Public Use
  Company Number: GB-SAMSUNG BIOEPIS-SB-2021-02933

PATIENT
  Age: 63 Year
  Sex: Male

DRUGS (1)
  1. IMRALDI [Suspect]
     Active Substance: ADALIMUMAB
     Indication: PSORIATIC ARTHROPATHY
     Route: 058
     Dates: start: 20201218

REACTIONS (7)
  - Therapeutic product effect incomplete [Unknown]
  - Walking aid user [Unknown]
  - Muscle strain [Unknown]
  - Poor quality sleep [Unknown]
  - COVID-19 [Unknown]
  - Osteoporosis [Unknown]
  - Fracture [Unknown]
